FAERS Safety Report 16863013 (Version 1)
Quarter: 2019Q3

REPORT INFORMATION
  Report Type: Spontaneous
  Country: CN (occurrence: CN)
  Receive Date: 20190927
  Receipt Date: 20190927
  Transmission Date: 20191005
  Serious: Yes (Other)
  Sender: FDA-Public Use
  Company Number: CN-ROCHE-2413457

PATIENT
  Age: 46 Year
  Sex: Female

DRUGS (6)
  1. PACLITAXEL. [Concomitant]
     Active Substance: PACLITAXEL
     Indication: INVASIVE BREAST CARCINOMA
     Route: 065
     Dates: start: 201608, end: 201612
  2. EPIRUBICIN [Concomitant]
     Active Substance: EPIRUBICIN
     Indication: INVASIVE BREAST CARCINOMA
     Route: 065
     Dates: start: 201608, end: 201612
  3. TOREMIFENE [Concomitant]
     Active Substance: TOREMIFENE
     Route: 065
     Dates: start: 20171101
  4. CYCLOPHOSPHAMIDE. [Concomitant]
     Active Substance: CYCLOPHOSPHAMIDE
     Indication: INVASIVE BREAST CARCINOMA
     Route: 065
     Dates: start: 201608, end: 201612
  5. TAMOXIFEN [Concomitant]
     Active Substance: TAMOXIFEN
     Route: 065
     Dates: start: 201612, end: 201711
  6. TRASTUZUMAB. [Suspect]
     Active Substance: TRASTUZUMAB
     Indication: INVASIVE BREAST CARCINOMA
     Route: 065
     Dates: start: 201612, end: 201711

REACTIONS (2)
  - Uterine haemorrhage [Unknown]
  - Endometrial thickening [Unknown]
